FAERS Safety Report 6688370-5 (Version None)
Quarter: 2010Q2

REPORT INFORMATION
  Report Type: 
  Country: None (occurrence: None)
  Receive Date: 20100420
  Receipt Date: 20100412
  Transmission Date: 20101027
  Serious: Yes (Hospitalization)
  Sender: FDA-Public Use
  Company Number: PHHY2009DE29623

PATIENT
  Age: 68 Year
  Sex: Female

DRUGS (1)
  1. DICLOFENAC [Suspect]
     Indication: BACK PAIN
     Dosage: 1 DF, ONCE/SINGLE
     Route: 048
     Dates: start: 20090623, end: 20090623

REACTIONS (13)
  - BLOOD PRESSURE INCREASED [None]
  - BRONCHOSPASM [None]
  - CONJUNCTIVAL HYPERAEMIA [None]
  - ELECTROCARDIOGRAM ABNORMAL [None]
  - ERYTHEMA [None]
  - HEART RATE INCREASED [None]
  - HYPERSENSITIVITY [None]
  - PALLOR [None]
  - PRURITUS [None]
  - RESPIRATORY RATE DECREASED [None]
  - SOMNOLENCE [None]
  - TACHYPNOEA [None]
  - URTICARIA [None]
